FAERS Safety Report 8876760 (Version 1)
Quarter: 2012Q4

REPORT INFORMATION
  Report Type: 
  Country: US (occurrence: US)
  Receive Date: 20121029
  Receipt Date: 20121029
  Transmission Date: 20130627
  Serious: No
  Sender: FDA-Public Use
  Company Number: US-PFIZER INC-2012265980

PATIENT
  Age: 81 Year
  Sex: Female

DRUGS (6)
  1. NITROSTAT [Suspect]
     Indication: CHEST PAIN
     Dosage: 0.4 mg, UNK
  2. NITROSTAT [Suspect]
     Dosage: UNK, as needed
  3. METOPROLOL [Concomitant]
     Indication: BLOOD PRESSURE HIGH
     Dosage: 50 mg, 2x/day
  4. DIGOXIN [Concomitant]
     Indication: BLOOD PRESSURE HIGH
     Dosage: 0.25 mg, daily
  5. FUROSEMIDE [Concomitant]
     Indication: BLOOD PRESSURE HIGH
     Dosage: 20 mg, 2x/day
  6. DIOVAN [Concomitant]
     Indication: BLOOD PRESSURE HIGH
     Dosage: 40 mg, daily

REACTIONS (2)
  - Drug ineffective [Unknown]
  - Paraesthesia oral [Unknown]
